FAERS Safety Report 19406958 (Version 2)
Quarter: 2021Q3

REPORT INFORMATION
  Report Type: Spontaneous
  Country: US (occurrence: US)
  Receive Date: 20210611
  Receipt Date: 20210907
  Transmission Date: 20211014
  Serious: No
  Sender: FDA-Public Use
  Company Number: US-GE HEALTHCARE LIFE SCIENCES-2021CSU002363

PATIENT
  Age: 72 Year
  Sex: Male
  Weight: 77.5 kg

DRUGS (3)
  1. OMNIPAQUE [Suspect]
     Active Substance: IOHEXOL
     Indication: PROSTATE CANCER
  2. OMNIPAQUE [Suspect]
     Active Substance: IOHEXOL
     Indication: COMPUTERISED TOMOGRAM ABDOMEN
     Dosage: 500 ML, SINGLE
     Route: 048
     Dates: start: 20210413, end: 20210413
  3. OMNIPAQUE [Suspect]
     Active Substance: IOHEXOL
     Indication: BLADDER CANCER

REACTIONS (3)
  - Incorrect product formulation administered [Recovered/Resolved]
  - Product label confusion [Recovered/Resolved]
  - No adverse event [Recovered/Resolved]

NARRATIVE: CASE EVENT DATE: 20210413
